FAERS Safety Report 8425615-5 (Version None)
Quarter: 2012Q2

REPORT INFORMATION
  Report Type: 
  Country: None (occurrence: None)
  Receive Date: 20120531
  Receipt Date: 20120522
  Transmission Date: 20120825
  Serious: Yes (Hospitalization)
  Sender: FDA-Public Use
  Company Number: 2012SP027514

PATIENT
  Age: 46 Year
  Sex: Female

DRUGS (9)
  1. PANTOPRAZOLE SODIUM [Concomitant]
  2. CLONAZEPAM [Concomitant]
  3. LEVOTHYROXINE SODIUM [Concomitant]
  4. VALPROIC ACID [Concomitant]
  5. CRESTOR [Concomitant]
  6. CELEBREX [Concomitant]
  7. SEROQUEL [Concomitant]
  8. SAPHRIS [Suspect]
     Indication: BIPOLAR DISORDER
     Dosage: 5 MG;QD
     Dates: start: 20120503, end: 20120522
  9. EFFEXOR [Concomitant]

REACTIONS (3)
  - KNEE ARTHROPLASTY [None]
  - OEDEMA PERIPHERAL [None]
  - WEIGHT INCREASED [None]
